FAERS Safety Report 8451074-2 (Version None)
Quarter: 2012Q2

REPORT INFORMATION
  Report Type: 
  Country: None (occurrence: None)
  Receive Date: 20120620
  Receipt Date: 20120611
  Transmission Date: 20120825
  Serious: Yes (Other)
  Sender: FDA-Public Use
  Company Number: BR-ASTRAZENECA-2012SE39655

PATIENT
  Age: 59 Year
  Sex: Female

DRUGS (2)
  1. SYMBICORT [Suspect]
     Dosage: 160/4.5 MCG WITH UNKNOWN FREQUENCY
     Route: 055
  2. SYMBICORT [Suspect]
     Dosage: 320/9 MCG WITH UNKNOWN FREQUENCY
     Route: 055

REACTIONS (1)
  - EMBOLISM [None]
